FAERS Safety Report 8423835-7 (Version None)
Quarter: 2012Q2

REPORT INFORMATION
  Report Type: 
  Country: None (occurrence: None)
  Receive Date: 20120608
  Receipt Date: 20110803
  Transmission Date: 20120825
  Serious: Yes (Other)
  Sender: FDA-Public Use
  Company Number: US-ASTRAZENECA-2011SE46414

PATIENT
  Age: 94 Year
  Sex: Female
  Weight: 53.5 kg

DRUGS (6)
  1. FUROSEMIDE [Concomitant]
  2. PLAVIX [Concomitant]
  3. CARVEDILOL [Concomitant]
  4. VITAMIN D [Concomitant]
  5. CALCIUM [Concomitant]
  6. ATACAND [Suspect]
     Indication: HYPERTENSION
     Route: 048
     Dates: start: 20010101

REACTIONS (3)
  - RENAL FAILURE [None]
  - CARDIAC FAILURE CONGESTIVE [None]
  - OSTEOPOROSIS [None]
